FAERS Safety Report 9322612 (Version 2)
Quarter: 2013Q3

REPORT INFORMATION
  Report Type: Spontaneous
  Country: US (occurrence: US)
  Receive Date: 20130531
  Receipt Date: 20130712
  Transmission Date: 20140515
  Serious: No
  Sender: FDA-Public Use
  Company Number: US-ASTRAZENECA-2004UW05502

PATIENT
  Age: 63 Year
  Sex: Female
  Weight: 74.4 kg

DRUGS (25)
  1. ENTOCORT EC [Suspect]
     Indication: IRRITABLE BOWEL SYNDROME
     Route: 048
     Dates: start: 20040318
  2. SEROQUEL [Suspect]
     Indication: PSYCHOTIC DISORDER
     Route: 048
  3. SEROQUEL [Suspect]
     Indication: BIPOLAR DISORDER
     Route: 048
  4. SEROQUEL [Suspect]
     Indication: MANIA
     Route: 048
  5. SEROQUEL [Suspect]
     Indication: PSYCHOTIC DISORDER
     Route: 048
     Dates: start: 20130516
  6. SEROQUEL [Suspect]
     Indication: BIPOLAR DISORDER
     Route: 048
     Dates: start: 20130516
  7. SEROQUEL [Suspect]
     Indication: MANIA
     Route: 048
     Dates: start: 20130516
  8. ZELNORM [Concomitant]
  9. CLONAZEPAM [Concomitant]
     Dosage: 1 MG 1/2 BID + 1 HS
  10. REMERON [Concomitant]
  11. SYNTHROID [Concomitant]
     Dosage: 125 UG AM
  12. WELLBUTRIN [Concomitant]
     Dosage: 150 MG AM
  13. NEXIUM [Concomitant]
     Route: 048
  14. ASPIRIN [Concomitant]
     Indication: THROMBOSIS
  15. CALCIUM [Concomitant]
  16. XALATAN [Concomitant]
     Dosage: 1 GTT OU HS
  17. CHOLESTEROL MEDICATION [Concomitant]
     Indication: BLOOD CHOLESTEROL INCREASED
  18. ACID REDUCER [Concomitant]
     Indication: GASTROOESOPHAGEAL REFLUX DISEASE
  19. CELEXA [Concomitant]
  20. DEPAKOTE [Concomitant]
  21. GABAPENTIN [Concomitant]
  22. LEVOTHYROXIN [Concomitant]
  23. CARBO/LEVODOPA [Concomitant]
  24. SIMVASTATIN [Concomitant]
  25. TROVATAN [Concomitant]

REACTIONS (5)
  - Hypertonic bladder [Unknown]
  - Gastrooesophageal reflux disease [Unknown]
  - Rheumatoid arthritis [Unknown]
  - Abdominal pain upper [Unknown]
  - Weight increased [Recovering/Resolving]
